FAERS Safety Report 8355373-4 (Version None)
Quarter: 2012Q2

REPORT INFORMATION
  Report Type: 
  Country: None (occurrence: None)
  Receive Date: 20120511
  Receipt Date: 20120430
  Transmission Date: 20120825
  Serious: Yes (Hospitalization)
  Sender: FDA-Public Use
  Company Number: IT-CELGENEUS-083-21880-12043197

PATIENT
  Sex: Male

DRUGS (10)
  1. ENOXAPARIN SODIUM [Concomitant]
     Route: 065
  2. FUROSEMIDE [Concomitant]
     Route: 065
  3. CYCLOPHOSPHAMIDE [Suspect]
     Indication: MULTIPLE MYELOMA
     Route: 065
     Dates: start: 20120111, end: 20120131
  4. LAMIVUDINE (EPIVIR HBV) [Concomitant]
     Route: 065
  5. BACTRIM [Concomitant]
     Route: 065
  6. RAMIPRIL [Concomitant]
     Route: 065
  7. PREDNISONE TAB [Suspect]
     Indication: MULTIPLE MYELOMA
     Route: 065
     Dates: start: 20120111, end: 20120131
  8. PANTOPRAZOLE [Concomitant]
     Route: 065
  9. REVLIMID [Suspect]
     Indication: MULTIPLE MYELOMA
     Route: 058
     Dates: start: 20120111, end: 20120131
  10. BISOPROLOL FUMARATE [Concomitant]
     Route: 065

REACTIONS (2)
  - CAROTID ARTERY STENOSIS [None]
  - TRANSIENT ISCHAEMIC ATTACK [None]
